FAERS Safety Report 20501750 (Version 1)
Quarter: 2022Q1

REPORT INFORMATION
  Report Type: Other
  Country: SE (occurrence: None)
  Receive Date: 20220222
  Receipt Date: 20220222
  Transmission Date: 20220423
  Serious: Yes (Death)
  Sender: FDA-Public Use
  Company Number: SE-ROCHE-3033640

PATIENT

DRUGS (2)
  1. MYCOPHENOLATE MOFETIL [Suspect]
     Active Substance: MYCOPHENOLATE MOFETIL
     Indication: Prophylaxis against transplant rejection
     Route: 065
  2. TACROLIMUS [Suspect]
     Active Substance: TACROLIMUS
     Indication: Prophylaxis against transplant rejection
     Dosage: STARTING DOSE AT 0.2 MG/KG ONCE DAILY WITH TARGET TROUGH LEVELS OF 5 TO 10 MG/L WITHIN THE FIRST 3 M
     Route: 065

REACTIONS (1)
  - Pancreatic carcinoma [Fatal]
